FAERS Safety Report 8011257-2 (Version None)
Quarter: 2011Q4

REPORT INFORMATION
  Report Type: 
  Country: None (occurrence: None)
  Receive Date: 20111227
  Receipt Date: 20111227
  Transmission Date: 20120403
  Serious: Yes (Other)
  Sender: FDA-Public Use
  Company Number: None

PATIENT
  Age: 13 Year
  Sex: Male
  Weight: 58.967 kg

DRUGS (1)
  1. IMIPRAMINE [Suspect]
     Indication: ENURESIS
     Dates: start: 20111202, end: 20111223

REACTIONS (5)
  - HALLUCINATION, VISUAL [None]
  - FEAR [None]
  - STRESS [None]
  - DEPRESSION [None]
  - DEATH OF RELATIVE [None]
